FAERS Safety Report 6975678-9 (Version None)
Quarter: 2010Q3

REPORT INFORMATION
  Report Type: 
  Country: None (occurrence: None)
  Receive Date: 20100908
  Receipt Date: 20100823
  Transmission Date: 20110219
  Serious: Yes (Other)
  Sender: FDA-Public Use
  Company Number: ACO_01952_2010

PATIENT
  Age: 62 Year
  Sex: Female
  Weight: 77.1115 kg

DRUGS (6)
  1. AMPYRA [Suspect]
     Indication: GAIT DISTURBANCE
     Dosage: (10 MG BID ORAL)
     Route: 048
     Dates: start: 20100809
  2. PROPRANOLOL 60 MG [Suspect]
     Indication: TREMOR
     Dosage: (60 MG QD), (30 MG QD)
     Dates: end: 20100820
  3. PROPRANOLOL 60 MG [Suspect]
     Indication: TREMOR
     Dosage: (60 MG QD), (30 MG QD)
     Dates: start: 20100824
  4. BACLOFEN [Concomitant]
  5. NALTREXONE [Concomitant]
  6. OXYBUTYNIN [Concomitant]

REACTIONS (3)
  - ASTHENIA [None]
  - DIZZINESS [None]
  - HYPOTENSION [None]
